FAERS Safety Report 17029091 (Version 1)
Quarter: 2019Q4

REPORT INFORMATION
  Report Type: Spontaneous
  Country: IT (occurrence: IT)
  Receive Date: 20191114
  Receipt Date: 20191114
  Transmission Date: 20200122
  Serious: Yes (Hospitalization, Other)
  Sender: FDA-Public Use
  Company Number: IT-AUROBINDO-AUR-APL-2019-072410

PATIENT
  Age: 56 Year
  Sex: Male

DRUGS (1)
  1. CITALOPRAM ORAL DROPS [Suspect]
     Active Substance: CITALOPRAM HYDROBROMIDE
     Indication: PRODUCT USED FOR UNKNOWN INDICATION
     Dosage: 15 MILLILITER, IN TOTAL
     Route: 048

REACTIONS (2)
  - Substance abuse [Unknown]
  - Psychomotor hyperactivity [Unknown]

NARRATIVE: CASE EVENT DATE: 20190511
